FAERS Safety Report 9898053 (Version 2)
Quarter: 2014Q3

REPORT INFORMATION
  Report Type: Spontaneous
  Country: US (occurrence: US)
  Receive Date: 20140214
  Receipt Date: 20140811
  Transmission Date: 20150326
  Serious: Yes (Hospitalization, Other)
  Sender: FDA-Public Use
  Company Number: US-009507513-1402USA006603

PATIENT
  Sex: Female
  Weight: 113.38 kg

DRUGS (1)
  1. NUVARING [Suspect]
     Active Substance: ETHINYL ESTRADIOL\ETONOGESTREL
     Indication: CONTRACEPTION
     Dosage: UNK
     Route: 067

REACTIONS (11)
  - Gallbladder disorder [Unknown]
  - Pancreatic disorder [Not Recovered/Not Resolved]
  - Migraine [Unknown]
  - Blood alkaline phosphatase increased [Unknown]
  - Liver function test abnormal [Unknown]
  - Pulmonary embolism [Unknown]
  - Leukocytosis [Unknown]
  - Cholecystectomy [Unknown]
  - Spinal fusion surgery [Unknown]
  - Intervertebral disc degeneration [Unknown]
  - Intervertebral disc protrusion [Unknown]

NARRATIVE: CASE EVENT DATE: 20110210
